FAERS Safety Report 22594784 (Version 5)
Quarter: 2024Q2

REPORT INFORMATION
  Report Type: Spontaneous
  Country: US (occurrence: US)
  Receive Date: 20230613
  Receipt Date: 20240528
  Transmission Date: 20240715
  Serious: Yes (Hospitalization, Other)
  Sender: FDA-Public Use
  Company Number: US-PFIZER INC-202300216163

PATIENT
  Age: 7 Year
  Sex: Female
  Weight: 33.57 kg

DRUGS (2)
  1. OXBRYTA [Suspect]
     Active Substance: VOXELOTOR
     Indication: Sickle cell disease
     Dosage: DISSOLVED IN WATER/300 MG TAB FOR ORAL SUSP 1^S
     Route: 048
     Dates: start: 20221128, end: 2023
  2. MIRALAX [Concomitant]
     Active Substance: POLYETHYLENE GLYCOL 3350
     Indication: Constipation
     Dosage: UNK

REACTIONS (11)
  - Acute chest syndrome [Unknown]
  - Arthralgia [Not Recovered/Not Resolved]
  - Pain [Not Recovered/Not Resolved]
  - Haemoglobin decreased [Unknown]
  - Malaise [Unknown]
  - Pyrexia [Unknown]
  - Nausea [Recovered/Resolved with Sequelae]
  - Decreased appetite [Unknown]
  - Drug ineffective [Unknown]
  - Intentional misuse of drug delivery system [Unknown]
  - Diarrhoea [Recovered/Resolved with Sequelae]

NARRATIVE: CASE EVENT DATE: 20230101
